FAERS Safety Report 24147407 (Version 1)
Quarter: 2024Q3

REPORT INFORMATION
  Report Type: Spontaneous
  Country: FR (occurrence: FR)
  Receive Date: 20240729
  Receipt Date: 20240729
  Transmission Date: 20241016
  Serious: Yes (Other)
  Sender: MYLAN
  Company Number: None

PATIENT
  Age: 75 Year
  Sex: Female
  Weight: 60 kg

DRUGS (2)
  1. DOXYCYCLINE [Suspect]
     Active Substance: DOXYCYCLINE\DOXYCYCLINE HYCLATE
     Indication: Mycobacterial infection
     Dosage: 200 MILLIGRAM, QD
     Route: 048
     Dates: start: 20231109
  2. MOXIFLOXACIN [Suspect]
     Active Substance: MOXIFLOXACIN
     Indication: Atypical mycobacterial infection
     Dosage: 400 MILLIGRAM, QD
     Route: 048
     Dates: start: 20230927

REACTIONS (1)
  - Renal failure [Not Recovered/Not Resolved]

NARRATIVE: CASE EVENT DATE: 20240105
